FAERS Safety Report 9505441 (Version 1)
Quarter: 2013Q1

REPORT INFORMATION
  Report Type: Spontaneous
  Country: US (occurrence: None)
  Receive Date: 20130220
  Receipt Date: 20130220
  Transmission Date: 20140127
  Serious: No
  Sender: FDA-Public Use
  Company Number: 1000041660

PATIENT
  Age: 65 Year
  Sex: Female

DRUGS (3)
  1. VIIBRYD (VILAZODONE HYDROCHLORIDE) [Suspect]
     Indication: ANXIETY
     Route: 048
     Dates: start: 201301
  2. IMIPRAMINE (IMIPRAMINE) (IMIPRAMINE) [Concomitant]
  3. XANAX (ALPRAZOLAM) (ALPRAZOLAM) [Concomitant]

REACTIONS (2)
  - Abdominal discomfort [None]
  - Off label use [None]
